FAERS Safety Report 10232573 (Version 2)
Quarter: 2014Q2

REPORT INFORMATION
  Report Type: Spontaneous
  Country: IE (occurrence: IE)
  Receive Date: 20140612
  Receipt Date: 20140612
  Transmission Date: 20141212
  Serious: Yes (Hospitalization)
  Sender: FDA-Public Use
  Company Number: IE-AMGEN-IRLSP2014032630

PATIENT
  Age: 53 Year
  Sex: Male

DRUGS (8)
  1. NEULASTA [Suspect]
     Indication: SMALL CELL LUNG CANCER
     Dosage: 6MG 24 HOURD POST CHEMOTHERAPY 3 WEEKLY
     Route: 058
     Dates: start: 20140411
  2. NEULASTA [Suspect]
     Indication: PROPHYLAXIS
  3. CARBOPLATIN [Concomitant]
     Dosage: UNK
  4. ALIMTA [Concomitant]
     Dosage: UNK
  5. XANAX [Concomitant]
     Dosage: UNK
  6. EMEND                              /01627301/ [Concomitant]
     Dosage: UNK
  7. DEXAMETHASONE [Concomitant]
     Dosage: UNK
  8. MOTILIUM                           /00498201/ [Concomitant]
     Dosage: UNK

REACTIONS (2)
  - Back pain [Recovered/Resolved]
  - Musculoskeletal pain [Recovered/Resolved]
